FAERS Safety Report 17747512 (Version 1)
Quarter: 2020Q2

REPORT INFORMATION
  Report Type: Spontaneous
  Country: GB (occurrence: GB)
  Receive Date: 20200505
  Receipt Date: 20200505
  Transmission Date: 20200714
  Serious: Yes (Other)
  Sender: FDA-Public Use
  Company Number: GB-SA-2020SA113329

PATIENT
  Age: 70 Year
  Sex: Male
  Weight: 109.31 kg

DRUGS (6)
  1. ELIQUIS [Suspect]
     Active Substance: APIXABAN
     Indication: TRANSIENT ISCHAEMIC ATTACK
     Dosage: 10 MG, QD
     Route: 048
     Dates: start: 20200203, end: 20200327
  2. DOXAZOSIN [Concomitant]
     Active Substance: DOXAZOSIN MESYLATE
     Dosage: 4 MG
  3. PERINDOPRIL [Concomitant]
     Active Substance: PERINDOPRIL
     Dosage: 4 MG
  4. LERCANIDIPINE [Concomitant]
     Active Substance: LERCANIDIPINE
     Dosage: 20 MG
  5. CLOPIDOGREL ZENTIVA [Suspect]
     Active Substance: CLOPIDOGREL BISULFATE
     Indication: TRANSIENT ISCHAEMIC ATTACK
     Dosage: 75 MG
     Route: 048
     Dates: start: 20191013, end: 20200203
  6. ALLOPURINOL. [Concomitant]
     Active Substance: ALLOPURINOL
     Dosage: 200 MG, DOSE INCREASED 30TH DECEMBER

REACTIONS (1)
  - Gout [Recovered/Resolved with Sequelae]

NARRATIVE: CASE EVENT DATE: 20191111
